FAERS Safety Report 14326688 (Version 2)
Quarter: 2017Q4

REPORT INFORMATION
  Report Type: Report from Study
  Country: MX (occurrence: MX)
  Receive Date: 20171227
  Receipt Date: 20171229
  Transmission Date: 20180321
  Serious: Yes (Hospitalization, Other)
  Sender: FDA-Public Use
  Company Number: MX-EMD SERONO-E2B_90002860

PATIENT
  Age: 6 Year
  Sex: Female

DRUGS (2)
  1. SAIZEN [Suspect]
     Active Substance: SOMATROPIN
     Indication: MALNUTRITION
  2. SAIZEN [Suspect]
     Active Substance: SOMATROPIN
     Indication: MAY-THURNER SYNDROME
     Dosage: 24 IU (8 MILLIGRAM)
     Route: 058
     Dates: start: 20170704

REACTIONS (3)
  - Infection [Unknown]
  - Pneumonia [Recovered/Resolved]
  - Off label use [Unknown]

NARRATIVE: CASE EVENT DATE: 2017
